FAERS Safety Report 9974131 (Version 1)
Quarter: 2014Q1

REPORT INFORMATION
  Report Type: Spontaneous
  Country: IT (occurrence: IT)
  Receive Date: 20140306
  Receipt Date: 20140306
  Transmission Date: 20141002
  Serious: Yes (Other)
  Sender: FDA-Public Use
  Company Number: IT-GLAXOSMITHKLINE-B0936005A

PATIENT
  Age: 80 Year
  Sex: Female

DRUGS (5)
  1. NADROPARIN CALCIUM [Suspect]
     Indication: PROPHYLAXIS
     Route: 065
     Dates: start: 20120914
  2. FONDAPARINUX [Suspect]
     Indication: THROMBOSIS
     Dosage: 7.5MG PER DAY
     Route: 065
     Dates: start: 201209
  3. DIURETICS [Concomitant]
  4. CALCIUM CHANNEL BLOCKERS [Concomitant]
  5. NSAIDS [Concomitant]

REACTIONS (4)
  - Thrombocytopenia [Recovered/Resolved]
  - Thrombosis [Unknown]
  - Pain in extremity [Unknown]
  - Off label use [Unknown]
